FAERS Safety Report 4476158-5 (Version None)
Quarter: 2004Q3

REPORT INFORMATION
  Report Type: 
  Country: None (occurrence: None)
  Receive Date: 20040923
  Receipt Date: 20040810
  Transmission Date: 20050211
  Serious: No
  Sender: FDA-Public Use
  Company Number: USA040875187

PATIENT
  Age: 52 Year
  Sex: Female

DRUGS (11)
  1. FORTEO [Suspect]
     Indication: LOWER LIMB FRACTURE
     Dosage: 20 UG/1 DAY
     Dates: start: 20040806
  2. ZOCOR [Concomitant]
  3. SEROQUEL [Concomitant]
  4. PROTONIX [Concomitant]
  5. AMARYL [Concomitant]
  6. ZETIA [Concomitant]
  7. AVANDIA [Concomitant]
  8. EFFEXOR [Concomitant]
  9. GABATRIL (TIAGABINE HYDROCHLORIDE) [Concomitant]
  10. ALTACE (RAMIPRIL) [Concomitant]
  11. AVANDAMET [Concomitant]

REACTIONS (6)
  - ASTHENIA [None]
  - BLOOD GLUCOSE FLUCTUATION [None]
  - BURNING SENSATION [None]
  - HEADACHE [None]
  - NAUSEA [None]
  - PAIN IN EXTREMITY [None]
